FAERS Safety Report 4347540-1 (Version None)
Quarter: 2004Q2

REPORT INFORMATION
  Report Type: 
  Country: None (occurrence: None)
  Receive Date: 20040426
  Receipt Date: 20040426
  Transmission Date: 20050107
  Serious: Yes (Other)
  Sender: FDA-Public Use
  Company Number: None

PATIENT
  Age: 54 Year
  Sex: Female
  Weight: 90.7194 kg

DRUGS (2)
  1. DURAGESIC [Suspect]
     Indication: MULTIPLE SCLEROSIS
     Dosage: ONE 72 HRS
     Dates: start: 20040420, end: 20040421
  2. DURAGESIC [Suspect]
     Indication: PAIN
     Dosage: ONE 72 HRS
     Dates: start: 20040420, end: 20040421

REACTIONS (3)
  - DYSPNOEA [None]
  - FATIGUE [None]
  - PHARMACEUTICAL PRODUCT COMPLAINT [None]
